FAERS Safety Report 7853836-9 (Version None)
Quarter: 2011Q4

REPORT INFORMATION
  Report Type: 
  Country: None (occurrence: None)
  Receive Date: 20111026
  Receipt Date: 20111022
  Transmission Date: 20120403
  Serious: Yes (Hospitalization, Other)
  Sender: FDA-Public Use
  Company Number: US-PFIZER INC-2011235872

PATIENT
  Age: 48 Year
  Sex: Female
  Weight: 56.8 kg

DRUGS (1)
  1. SUTENT [Suspect]
     Indication: OVARIAN EPITHELIAL CANCER
     Dosage: 50 MG, 1X/DAY, 4 WEEKS ON/2 WEEKS OFF
     Route: 048
     Dates: start: 20110831, end: 20110927

REACTIONS (4)
  - DIARRHOEA [None]
  - ANAEMIA [None]
  - PLEURAL EFFUSION [None]
  - LUNG INFECTION [None]
